FAERS Safety Report 5066813-0 (Version None)
Quarter: 2006Q3

REPORT INFORMATION
  Report Type: 
  Country: None (occurrence: None)
  Receive Date: 20060726
  Receipt Date: 20060724
  Transmission Date: 20061208
  Serious: Yes (Other)
  Sender: FDA-Public Use
  Company Number: 200612440BWH

PATIENT
  Age: 41 Year
  Sex: Male

DRUGS (4)
  1. LEVITRA [Suspect]
     Indication: ERECTILE DYSFUNCTION
     Dosage: 20 MG, ONCE, ORAL; SEE IMAGE
     Route: 048
     Dates: start: 20060401
  2. TEGRETOL [Concomitant]
  3. DILANTIN [Concomitant]
  4. VALPROIC ACID [Concomitant]

REACTIONS (2)
  - BLINDNESS TRANSIENT [None]
  - PHOTOPSIA [None]
